FAERS Safety Report 20764536 (Version 3)
Quarter: 2022Q2

REPORT INFORMATION
  Report Type: Report from Study
  Country: SE (occurrence: SE)
  Receive Date: 20220428
  Receipt Date: 20220518
  Transmission Date: 20220720
  Serious: Yes (Other)
  Sender: FDA-Public Use
  Company Number: SE-ABBVIE-22K-150-4372949-00

PATIENT
  Sex: Male
  Weight: 95 kg

DRUGS (11)
  1. CARBIDOPA\LEVODOPA [Suspect]
     Active Substance: CARBIDOPA\LEVODOPA
     Indication: Parkinson^s disease
     Dosage: MORNING DOSE 8.6, CONTINUOUS DOSE 5.0 AND EXTRA DOSE 1.0
     Route: 050
     Dates: start: 20070831
  2. CARBIDOPA\LEVODOPA [Suspect]
     Active Substance: CARBIDOPA\LEVODOPA
     Route: 050
     Dates: start: 20220512
  3. CARBIDOPA\LEVODOPA [Suspect]
     Active Substance: CARBIDOPA\LEVODOPA
     Route: 050
  4. CYANOCOBALAMIN [Concomitant]
     Active Substance: CYANOCOBALAMIN
     Indication: Vitamin B12 deficiency
  5. FOLIC ACID [Concomitant]
     Active Substance: FOLIC ACID
     Indication: Folate deficiency
  6. QUETIAPINE [Concomitant]
     Active Substance: QUETIAPINE
     Indication: Hallucination
     Dosage: 100 MG, 2 PCS AT 10 PM
  7. VENLAFAXINE [Concomitant]
     Active Substance: VENLAFAXINE HYDROCHLORIDE
     Indication: Depression
  8. VENLAFAXINE [Concomitant]
     Active Substance: VENLAFAXINE HYDROCHLORIDE
     Dosage: 75 MG IN THE MORNING
  9. RIVASTIGMINE [Concomitant]
     Active Substance: RIVASTIGMINE
     Indication: Dementia
     Dosage: 2 TABLETS MORNING, 2 TABLETS EVENING.
  10. MELOXICAM [Concomitant]
     Active Substance: MELOXICAM
     Indication: Sleep disorder
     Dosage: REGULARLY IN THE EVENING
  11. CLONAZEPAM [Concomitant]
     Active Substance: CLONAZEPAM
     Indication: Sleep disorder
     Dosage: HALF TABLET IN THE EVENING

REACTIONS (7)
  - Cataract [Not Recovered/Not Resolved]
  - Glaucoma [Recovering/Resolving]
  - Fall [Recovered/Resolved]
  - Dementia [Unknown]
  - Vitamin B12 deficiency [Unknown]
  - Folate deficiency [Unknown]
  - Hyperkinesia [Recovering/Resolving]
